FAERS Safety Report 4284972-4 (Version None)
Quarter: 2004Q1

REPORT INFORMATION
  Report Type: 
  Country: None (occurrence: None)
  Receive Date: 20040202
  Receipt Date: 20040123
  Transmission Date: 20041129
  Serious: Yes (Other)
  Sender: FDA-Public Use
  Company Number: US-JNJFOC-20031100188

PATIENT
  Age: 63 Year
  Sex: Female

DRUGS (22)
  1. REMICADE [Suspect]
     Indication: INTERSTITIAL LUNG DISEASE
     Dosage: 200 MG, INTRAVENOUS
     Route: 042
     Dates: start: 20030205
  2. REMICADE [Suspect]
     Indication: RHEUMATOID ARTHRITIS
     Dosage: 200 MG, INTRAVENOUS
     Route: 042
     Dates: start: 20030205
  3. REMICADE [Suspect]
     Indication: INTERSTITIAL LUNG DISEASE
     Dosage: 200 MG, INTRAVENOUS
     Route: 042
     Dates: start: 20030604
  4. REMICADE [Suspect]
     Indication: RHEUMATOID ARTHRITIS
     Dosage: 200 MG, INTRAVENOUS
     Route: 042
     Dates: start: 20030604
  5. REMICADE [Suspect]
     Indication: INTERSTITIAL LUNG DISEASE
     Dosage: 200 MG, INTRAVENOUS
     Route: 042
     Dates: start: 20030730
  6. REMICADE [Suspect]
     Indication: RHEUMATOID ARTHRITIS
     Dosage: 200 MG, INTRAVENOUS
     Route: 042
     Dates: start: 20030730
  7. REMICADE [Suspect]
     Indication: INTERSTITIAL LUNG DISEASE
     Dosage: 200 MG, INTRAVENOUS
     Route: 042
     Dates: start: 20030903
  8. REMICADE [Suspect]
     Indication: RHEUMATOID ARTHRITIS
     Dosage: 200 MG, INTRAVENOUS
     Route: 042
     Dates: start: 20030903
  9. REMICADE [Suspect]
     Indication: INTERSTITIAL LUNG DISEASE
     Dosage: 200 MG, INTRAVENOUS
     Route: 042
     Dates: start: 20031008
  10. REMICADE [Suspect]
     Indication: RHEUMATOID ARTHRITIS
     Dosage: 200 MG, INTRAVENOUS
     Route: 042
     Dates: start: 20031008
  11. METHOTREXATE [Suspect]
     Indication: RHEUMATOID ARTHRITIS
     Dosage: 7.5 MG, 1 IN 1 WEEK
     Dates: start: 20021001
  12. CALCIUM (CALCIUM) [Concomitant]
  13. PREDNISONE [Concomitant]
  14. MAGNESIUM (MAGNESIUM) [Concomitant]
  15. FOSAMAX [Concomitant]
  16. FOLIC ACID [Concomitant]
  17. UNITHROID (NOVOTHYRAL) [Concomitant]
  18. ACIPHEX [Concomitant]
  19. MULTIVITAMIN [Concomitant]
  20. ZYRTEC [Concomitant]
  21. COMBIVENT [Concomitant]
  22. NASACORT [Concomitant]

REACTIONS (3)
  - BACTERIAL CULTURE POSITIVE [None]
  - MYCOBACTERIUM AVIUM COMPLEX INFECTION [None]
  - TUBERCULOSIS [None]
